FAERS Safety Report 9204766 (Version 3)
Quarter: 2014Q2

REPORT INFORMATION
  Report Type: Spontaneous
  Country: US (occurrence: US)
  Receive Date: 20130402
  Receipt Date: 20140620
  Transmission Date: 20141212
  Serious: Yes (Hospitalization)
  Sender: FDA-Public Use
  Company Number: US-GLAXOSMITHKLINE-A1017306A

PATIENT
  Age: 63 Year
  Sex: Female

DRUGS (7)
  1. VOTRIENT [Suspect]
     Indication: RENAL CELL CARCINOMA
     Dosage: 800MG PER DAY
     Route: 048
     Dates: start: 20121016, end: 201302
  2. CITALOPRAM [Concomitant]
  3. ARIMIDEX [Concomitant]
  4. ACTOS [Concomitant]
  5. METOPROLOL [Concomitant]
  6. LEVOTHYROXINE [Concomitant]
  7. BABY ASPIRIN [Concomitant]

REACTIONS (3)
  - Arthritis infective [Unknown]
  - Joint effusion [Unknown]
  - Hypoglycaemia [Unknown]
